FAERS Safety Report 8216128-4 (Version None)
Quarter: 2012Q1

REPORT INFORMATION
  Report Type: 
  Country: None (occurrence: None)
  Receive Date: 20120316
  Receipt Date: 20120306
  Transmission Date: 20120608
  Serious: Yes (Hospitalization, Other)
  Sender: FDA-Public Use
  Company Number: US-ELI_LILLY_AND_COMPANY-US201203001822

PATIENT
  Sex: Female

DRUGS (4)
  1. HUMALOG [Suspect]
     Dosage: 6 U, TID
  2. HUMULIN N [Suspect]
     Indication: GESTATIONAL DIABETES
     Dosage: 10 U, EACH MORNING
  3. HUMULIN N [Suspect]
     Dosage: 34 U, EACH EVENING
  4. HUMALOG [Suspect]
     Indication: GESTATIONAL DIABETES
     Dosage: 12 U, TID

REACTIONS (6)
  - BLOOD GLUCOSE INCREASED [None]
  - INJECTION SITE HAEMATOMA [None]
  - MATERNAL EXPOSURE DURING PREGNANCY [None]
  - UNDERDOSE [None]
  - INJECTION SITE PAIN [None]
  - ABORTION MISSED [None]
